FAERS Safety Report 6303236-8 (Version None)
Quarter: 2009Q3

REPORT INFORMATION
  Report Type: 
  Country: None (occurrence: None)
  Receive Date: 20090810
  Receipt Date: 20090226
  Transmission Date: 20100115
  Serious: No
  Sender: FDA-Public Use
  Company Number: A0770705A

PATIENT
  Age: 31 Year
  Sex: Male

DRUGS (2)
  1. PAXIL [Suspect]
     Indication: DEPRESSION
     Dosage: 20MG TWICE PER DAY
     Route: 048
     Dates: start: 20040101
  2. BUSPAR [Concomitant]

REACTIONS (4)
  - JOINT STIFFNESS [None]
  - MUSCLE SPASMS [None]
  - NECK PAIN [None]
  - TREMOR [None]
